FAERS Safety Report 6826711-6 (Version None)
Quarter: 2010Q3

REPORT INFORMATION
  Report Type: 
  Country: None (occurrence: None)
  Receive Date: 20100709
  Receipt Date: 20100630
  Transmission Date: 20110219
  Serious: Yes (Other)
  Sender: FDA-Public Use
  Company Number: GXKR2010US07261

PATIENT
  Age: 28 Year
  Sex: Male

DRUGS (2)
  1. VALPROIC ACID (NGX) [Interacting]
     Indication: PROPHYLAXIS
     Dosage: 25 MG/KG, UNK
  2. IMIPENEM [Suspect]
     Dosage: 500 MG, Q6H

REACTIONS (3)
  - CONVULSION [None]
  - DRUG INTERACTION [None]
  - DRUG LEVEL DECREASED [None]
